FAERS Safety Report 5200784-9 (Version None)
Quarter: 2006Q4

REPORT INFORMATION
  Report Type: 
  Country: None (occurrence: None)
  Receive Date: 20061016
  Receipt Date: 20060626
  Transmission Date: 20070319
  Serious: No
  Sender: FDA-Public Use
  Company Number: 2006SP002540

PATIENT
  Sex: Female

DRUGS (1)
  1. LUNESTA [Suspect]
     Dosage: 3 MG, ORAL
     Route: 048
     Dates: start: 20050101

REACTIONS (3)
  - CONSTIPATION [None]
  - POLLAKIURIA [None]
  - SOMNOLENCE [None]
